FAERS Safety Report 4765995-5 (Version None)
Quarter: 2005Q3

REPORT INFORMATION
  Report Type: 
  Country: None (occurrence: None)
  Receive Date: 20050912
  Receipt Date: 20050815
  Transmission Date: 20060218
  Serious: Yes (Other)
  Sender: FDA-Public Use
  Company Number: US-GLAXOSMITHKLINE-A0570262A

PATIENT
  Age: 33 Year
  Sex: Male
  Weight: 81.8 kg

DRUGS (2)
  1. LAMICTAL [Suspect]
     Indication: BIPOLAR DISORDER
     Route: 048
     Dates: start: 20040805, end: 20050715
  2. GEODON [Suspect]
     Indication: BIPOLAR DISORDER
     Dosage: 60MG TWICE PER DAY
     Route: 048
     Dates: start: 20050520, end: 20050715

REACTIONS (4)
  - BODY TEMPERATURE INCREASED [None]
  - DYSTONIA [None]
  - RASH [None]
  - RHABDOMYOLYSIS [None]
